FAERS Safety Report 5728721-9 (Version None)
Quarter: 2008Q2

REPORT INFORMATION
  Report Type: 
  Country: None (occurrence: None)
  Receive Date: 20080506
  Receipt Date: 20080422
  Transmission Date: 20081010
  Serious: Yes (Death, Life-Threatening, Hospitalization, Congenital Anomaly)
  Sender: FDA-Public Use
  Company Number: A0678469A

PATIENT
  Sex: Female
  Weight: 3.1 kg

DRUGS (2)
  1. PAXIL [Suspect]
     Indication: DEPRESSION
     Dates: start: 20010101, end: 20030101
  2. VITAMIN TAB [Concomitant]

REACTIONS (50)
  - AMBLYOPIA [None]
  - ANAL ATRESIA [None]
  - ANENCEPHALY [None]
  - ANXIETY [None]
  - APNOEA [None]
  - ASPIRATION [None]
  - ATELECTASIS [None]
  - BLINDNESS [None]
  - CARDIAC MURMUR [None]
  - CARDIOMEGALY [None]
  - CARDIOVASCULAR DISORDER [None]
  - CELLULITIS [None]
  - CLEFT PALATE [None]
  - CORNEAL SCAR [None]
  - COUGH [None]
  - CYANOSIS [None]
  - DEVELOPMENTAL DELAY [None]
  - DRUG EXPOSURE DURING PREGNANCY [None]
  - DYSMORPHISM [None]
  - DYSPHAGIA [None]
  - EPILEPSY [None]
  - FACTOR V LEIDEN MUTATION [None]
  - FAILURE TO THRIVE [None]
  - GASTROOESOPHAGEAL REFLUX DISEASE [None]
  - HEART DISEASE CONGENITAL [None]
  - HETEROPHORIA [None]
  - HIATUS HERNIA [None]
  - HOLOPROSENCEPHALY [None]
  - HYDROCEPHALUS [None]
  - HYPERREFLEXIA [None]
  - HYPERTONIA [None]
  - HYPOACUSIS [None]
  - HYPOXIA [None]
  - IMPAIRED GASTRIC EMPTYING [None]
  - INFECTION [None]
  - INJURY [None]
  - MICROCEPHALY [None]
  - MICROGNATHIA [None]
  - NERVOUS SYSTEM DISORDER [None]
  - PAIN [None]
  - PIERRE ROBIN SYNDROME [None]
  - PNEUMONIA ASPIRATION [None]
  - PYREXIA [None]
  - QUADRIPARESIS [None]
  - RESPIRATORY DISTRESS [None]
  - SCAR [None]
  - SKIN IRRITATION [None]
  - STRABISMUS [None]
  - VAGINAL FISTULA [None]
  - VENTRICULAR SEPTAL DEFECT [None]
